FAERS Safety Report 11989567 (Version 1)
Quarter: 2016Q1

REPORT INFORMATION
  Report Type: Spontaneous
  Country: US (occurrence: US)
  Receive Date: 20160202
  Receipt Date: 20160202
  Transmission Date: 20160526
  Serious: No
  Sender: FDA-Public Use
  Company Number: US-ROCHE-1533623

PATIENT
  Sex: Female

DRUGS (44)
  1. CLARITIN [Concomitant]
     Active Substance: LORATADINE
     Indication: HYPERSENSITIVITY
     Dosage: EVERY MORNING
     Route: 065
  2. CALCIUM CARBONATE. [Concomitant]
     Active Substance: CALCIUM CARBONATE
     Indication: OSTEOPOROSIS
     Dosage: WITH FOOD
     Route: 065
  3. TYLENOL [Concomitant]
     Active Substance: ACETAMINOPHEN
     Indication: ARTHRITIS
     Dosage: TAKEN WITH 650MG TYLENOL
     Route: 065
  4. VITAMIN B12 [Concomitant]
     Active Substance: CYANOCOBALAMIN
     Indication: PERNICIOUS ANAEMIA
     Dosage: 1000MCG/ML
     Route: 065
  5. LEVOTHYROXINE. [Concomitant]
     Active Substance: LEVOTHYROXINE
     Indication: HYPOTHYROIDISM
     Dosage: 75MCG, EVERY MORNING, 30 MINS PRIOR TO EATING
     Route: 065
  6. CYMBALTA [Concomitant]
     Active Substance: DULOXETINE HYDROCHLORIDE
  7. NEURONTIN [Concomitant]
     Active Substance: GABAPENTIN
     Indication: OSTEOARTHRITIS
  8. VITAMIN E CAPSULES [Concomitant]
     Dosage: EVERY MORNING.
     Route: 065
  9. CELEXA (UNITED STATES) [Concomitant]
     Indication: DEPRESSION
     Route: 048
  10. MONTELUKAST [Concomitant]
     Active Substance: MONTELUKAST SODIUM
     Indication: ASTHMA
     Route: 065
  11. MONTELUKAST [Concomitant]
     Active Substance: MONTELUKAST SODIUM
     Indication: MULTIPLE ALLERGIES
  12. CELEBREX [Concomitant]
     Active Substance: CELECOXIB
     Indication: PAIN
     Dosage: WITH FOOD
     Route: 065
  13. CIPROFLOXACIN. [Concomitant]
     Active Substance: CIPROFLOXACIN
  14. HALDOL [Concomitant]
     Active Substance: HALOPERIDOL
  15. ALBUTEROL INHALER [Concomitant]
     Active Substance: ALBUTEROL
     Indication: ASTHMA
     Dosage: 2 PUFFS EVERY 4-6HOURS AS NEEDED
     Route: 065
  16. ALBUTEROL NEBULIZER [Concomitant]
     Active Substance: ALBUTEROL
     Indication: ASTHMA
     Dosage: EVERY 4 HOURS AS NEEDED WHEN RESCUE INHALER NOT ADEQUATE
     Route: 065
  17. VITAMIN B6 [Concomitant]
     Active Substance: PYRIDOXINE HYDROCHLORIDE
     Route: 065
  18. ASPIRIN. [Concomitant]
     Active Substance: ASPIRIN
     Route: 065
  19. ZEPHREX [Concomitant]
  20. TYLENOL [Concomitant]
     Active Substance: ACETAMINOPHEN
     Indication: PAIN
     Route: 065
  21. ZEAXANTHIN [Concomitant]
     Active Substance: ZEAXANTHIN
     Dosage: EVERY NIGHT
     Route: 065
  22. BENADRYL ORAL (UNITED STATES) [Concomitant]
     Indication: PRURITUS
     Dosage: 1-2 CAPSULES
     Route: 065
  23. EFFEXOR [Concomitant]
     Active Substance: VENLAFAXINE HYDROCHLORIDE
  24. TEGRETOL [Concomitant]
     Active Substance: CARBAMAZEPINE
  25. SUDAFED [Concomitant]
     Active Substance: PSEUDOEPHEDRINE HYDROCHLORIDE
     Indication: SINUS CONGESTION
     Dosage: TWO TABLETS EVERY 4-6 HOURS AS NEEDED. NOT MORE THAN 8 TABS IN 24 HOURS.
     Route: 065
  26. CODEINE [Concomitant]
     Active Substance: CODEINE
  27. LEVOFLOXACIN. [Concomitant]
     Active Substance: LEVOFLOXACIN
  28. TOPAMAX [Concomitant]
     Active Substance: TOPIRAMATE
  29. TORADOL [Suspect]
     Active Substance: KETOROLAC TROMETHAMINE
     Indication: PRODUCT USED FOR UNKNOWN INDICATION
     Route: 065
  30. ACYCLOVIR. [Concomitant]
     Active Substance: ACYCLOVIR
     Indication: HERPES SIMPLEX
     Dosage: HALF TABLET
     Route: 048
  31. BENADRYL ORAL (UNITED STATES) [Concomitant]
     Indication: URTICARIA
  32. LATEX [Concomitant]
     Active Substance: NATURAL LATEX RUBBER
  33. KLONOPIN [Concomitant]
     Active Substance: CLONAZEPAM
     Indication: ANXIETY
     Route: 065
  34. VITAMIN D3 [Concomitant]
     Active Substance: CHOLECALCIFEROL
     Dosage: WITH FOOD
     Route: 065
  35. VITAMIN C [Concomitant]
     Active Substance: ASCORBIC ACID
     Route: 065
  36. LUTEIN [Concomitant]
     Active Substance: LUTEIN
     Dosage: EVERY NIGHT
     Route: 065
  37. FOLIC ACID. [Concomitant]
     Active Substance: FOLIC ACID
     Dosage: 400MCG
     Route: 065
  38. ULTRAM [Concomitant]
     Active Substance: TRAMADOL HYDROCHLORIDE
  39. ADHESIVE TAPE [Concomitant]
     Active Substance: ADHESIVE TAPE
  40. NEURONTIN [Concomitant]
     Active Substance: GABAPENTIN
     Indication: PAIN
     Route: 048
  41. ZANTAC TABS [Concomitant]
     Indication: GASTRODUODENAL ULCER
     Route: 065
  42. VITAMIN D3 [Concomitant]
     Active Substance: CHOLECALCIFEROL
     Dosage: WITH MEALS
     Route: 065
  43. TYLENOL [Concomitant]
     Active Substance: ACETAMINOPHEN
     Dosage: LESS THAN 400MG/DAY.
     Route: 065
  44. COLACE [Concomitant]
     Active Substance: DOCUSATE SODIUM
     Indication: HAEMORRHOIDS
     Route: 065

REACTIONS (1)
  - Drug hypersensitivity [Unknown]
